FAERS Safety Report 9217331 (Version 2)
Quarter: 2013Q2

REPORT INFORMATION
  Report Type: Spontaneous
  Country: AU (occurrence: AU)
  Receive Date: 20130408
  Receipt Date: 20130427
  Transmission Date: 20140414
  Serious: Yes (Life-Threatening, Hospitalization, Other)
  Sender: FDA-Public Use
  Company Number: AU-SANOFI-AVENTIS-2013SA035445

PATIENT
  Age: 72 Year
  Sex: Male
  Weight: 96 kg

DRUGS (10)
  1. CLOPIDOGREL BISULFATE [Suspect]
     Indication: MYOCARDIAL ISCHAEMIA
     Route: 065
  2. ASPIRIN [Suspect]
     Indication: MYOCARDIAL ISCHAEMIA
     Route: 065
  3. WARFARIN SODIUM [Suspect]
     Indication: ATRIAL FIBRILLATION
     Route: 065
  4. BLINDED THERAPY [Concomitant]
     Indication: RESPIRATORY DISORDER
     Route: 065
     Dates: start: 20111223, end: 20120115
  5. SPIRIVA [Concomitant]
  6. SERETIDE [Concomitant]
  7. VENTOLINE [Concomitant]
  8. ATORVASTATIN [Concomitant]
  9. DILTIAZEM [Concomitant]
  10. CANDESARTAN [Concomitant]

REACTIONS (3)
  - Infective exacerbation of bronchiectasis [Recovered/Resolved]
  - Haemorrhage intracranial [Recovered/Resolved with Sequelae]
  - Haemorrhoidal haemorrhage [Unknown]
